FAERS Safety Report 12472937 (Version 1)
Quarter: 2016Q2

REPORT INFORMATION
  Report Type: Spontaneous
  Country: US (occurrence: US)
  Receive Date: 20160616
  Receipt Date: 20160616
  Transmission Date: 20160815
  Serious: Yes (Death, Other)
  Sender: FDA-Public Use
  Company Number: US-MDT-ADR-2016-01111

PATIENT
  Age: 68 Year
  Sex: Female

DRUGS (5)
  1. PAIN MEDICATION [Suspect]
     Active Substance: UNSPECIFIED INGREDIENT
  2. BACLOFEN. [Suspect]
     Active Substance: BACLOFEN
  3. DIABETIC MEDICATION [Suspect]
     Active Substance: UNSPECIFIED INGREDIENT
  4. TONS OF MEDICATION [Suspect]
     Active Substance: UNSPECIFIED INGREDIENT
  5. BACLOFEN. [Suspect]
     Active Substance: BACLOFEN
     Route: 037

REACTIONS (1)
  - Pneumonia aspiration [Fatal]

NARRATIVE: CASE EVENT DATE: 20160117
